FAERS Safety Report 5748645-0 (Version None)
Quarter: 2008Q2

REPORT INFORMATION
  Report Type: 
  Country: None (occurrence: None)
  Receive Date: 20080523
  Receipt Date: 20080519
  Transmission Date: 20081010
  Serious: Yes (Other)
  Sender: FDA-Public Use
  Company Number: JP-PFIZER INC-2008043295

PATIENT
  Sex: Male

DRUGS (2)
  1. DETRUSITOL SR [Suspect]
     Indication: HYPERTONIC BLADDER
     Route: 048
     Dates: start: 20070526, end: 20070624
  2. URIEF [Concomitant]
     Route: 048
     Dates: start: 20070526, end: 20070624

REACTIONS (1)
  - RASH [None]
